FAERS Safety Report 8411781 (Version 6)
Quarter: 2016Q3

REPORT INFORMATION
  Report Type: Spontaneous
  Country: US (occurrence: US)
  Receive Date: 20120217
  Receipt Date: 20160804
  Transmission Date: 20161109
  Serious: Yes (Hospitalization, Disabling, Other)
  Sender: FDA-Public Use
  Company Number: US-009507513-1202USA02463

PATIENT
  Sex: Female
  Weight: 64.41 kg

DRUGS (8)
  1. FOSAMAX [Suspect]
     Active Substance: ALENDRONATE SODIUM
     Indication: OSTEOPENIA
     Dosage: 70 MG, QW
     Route: 048
     Dates: start: 19981020, end: 20020930
  2. FOSAMAX [Suspect]
     Active Substance: ALENDRONATE SODIUM
     Dosage: 70 MG, UNK
     Route: 048
     Dates: start: 20030827, end: 20060601
  3. FOSAMAX PLUS D [Suspect]
     Active Substance: ALENDRONATE SODIUM\CHOLECALCIFEROL
     Indication: OSTEOPENIA
  4. NASONEX [Concomitant]
     Active Substance: MOMETASONE FUROATE
     Indication: PRODUCT USED FOR UNKNOWN INDICATION
     Route: 055
     Dates: start: 20100728
  5. FOSAMAX [Suspect]
     Active Substance: ALENDRONATE SODIUM
     Indication: OSTEOPOROSIS
     Dosage: 10 MG, QW
     Route: 048
     Dates: start: 19981020, end: 20001017
  6. FOSAMAX PLUS D [Suspect]
     Active Substance: ALENDRONATE SODIUM\CHOLECALCIFEROL
     Indication: OSTEOPOROSIS
     Dosage: 70 MG, QW
     Route: 048
     Dates: start: 20070721, end: 20100301
  7. CALCIUM (UNSPECIFIED) [Concomitant]
     Active Substance: CALCIUM
     Indication: OSTEOPOROSIS
     Route: 065
  8. FOSAMAX [Suspect]
     Active Substance: ALENDRONATE SODIUM
     Dosage: 100 MG, QW
     Route: 048

REACTIONS (56)
  - Low density lipoprotein increased [Unknown]
  - Rotator cuff syndrome [Unknown]
  - Arthropathy [Unknown]
  - Chest pain [Unknown]
  - Tricuspid valve incompetence [Unknown]
  - Vision blurred [Unknown]
  - Drug ineffective [Unknown]
  - Osteoarthritis [Unknown]
  - Bursitis [Unknown]
  - Drug intolerance [Unknown]
  - Acute sinusitis [Unknown]
  - Heart sounds abnormal [Unknown]
  - Mitral valve calcification [Unknown]
  - Arthropathy [Unknown]
  - Overdose [Unknown]
  - Low turnover osteopathy [Not Recovered/Not Resolved]
  - Hypertension [Unknown]
  - Musculoskeletal stiffness [Unknown]
  - Hypokinesia [Unknown]
  - Ingrowing nail [Unknown]
  - Hypercholesterolaemia [Unknown]
  - Arthralgia [Unknown]
  - Rotator cuff syndrome [Unknown]
  - Fibrocystic breast disease [Unknown]
  - Cardiac murmur [Unknown]
  - Myocardial ischaemia [Unknown]
  - Mitral valve incompetence [Unknown]
  - Palpitations [Unknown]
  - Fall [Unknown]
  - Poor quality sleep [Unknown]
  - Exostosis [Unknown]
  - Bursitis [Unknown]
  - Aortic arteriosclerosis [Unknown]
  - Atrial fibrillation [Unknown]
  - Gait disturbance [Recovered/Resolved]
  - Osteoarthritis [Unknown]
  - Atrophic vulvovaginitis [Unknown]
  - Rotator cuff syndrome [Unknown]
  - Anxiety [Unknown]
  - Urinary tract infection [Unknown]
  - Cardiovascular disorder [Unknown]
  - Hypotension [Unknown]
  - Impaired healing [Unknown]
  - Depression [Unknown]
  - Rotator cuff syndrome [Recovering/Resolving]
  - Dermatitis [Unknown]
  - Dysuria [Unknown]
  - Dizziness [Unknown]
  - Fall [Unknown]
  - Femur fracture [Not Recovered/Not Resolved]
  - Gastrooesophageal reflux disease [Unknown]
  - Thyroid mass [Unknown]
  - Bladder prolapse [Unknown]
  - Arteriosclerosis [Unknown]
  - Tonsillar disorder [Unknown]
  - Arthropathy [Unknown]

NARRATIVE: CASE EVENT DATE: 1998
